FAERS Safety Report 9628540 (Version 2)
Quarter: 2014Q1

REPORT INFORMATION
  Report Type: Spontaneous
  Country: IT (occurrence: IT)
  Receive Date: 20131017
  Receipt Date: 20140127
  Transmission Date: 20141002
  Serious: Yes (Life-Threatening, Hospitalization)
  Sender: FDA-Public Use
  Company Number: IT-JNJFOC-20131008143

PATIENT
  Age: 18 Year
  Sex: Female

DRUGS (5)
  1. ZYRTEC [Suspect]
     Route: 048
  2. ZYRTEC [Suspect]
     Indication: STOMATITIS
     Route: 048
     Dates: start: 20130501, end: 20130505
  3. BENTELAN [Suspect]
     Indication: STOMATITIS
     Route: 048
     Dates: start: 20130501, end: 20130505
  4. TORADOL [Suspect]
     Indication: STOMATITIS
     Route: 048
     Dates: start: 20130501, end: 20130505
  5. TACHIDOL [Suspect]
     Indication: STOMATITIS
     Route: 048
     Dates: start: 20130504, end: 20130505

REACTIONS (2)
  - Dermatitis bullous [Recovering/Resolving]
  - Oedema mouth [Recovering/Resolving]
